FAERS Safety Report 6083418-3 (Version None)
Quarter: 2009Q1

REPORT INFORMATION
  Report Type: 
  Country: None (occurrence: None)
  Receive Date: 20090217
  Receipt Date: 20090130
  Transmission Date: 20090719
  Serious: Yes (Death)
  Sender: FDA-Public Use
  Company Number: 000362

PATIENT
  Age: 22 Year
  Sex: Female

DRUGS (6)
  1. ALPRAZOLAM [Suspect]
  2. COCAINE [Suspect]
  3. METHADONE HCL [Suspect]
  4. DEXTROMETHORPHAN HYDROBROMIDE [Suspect]
  5. DIAZEPAM [Suspect]
  6. FLUOXETINE [Suspect]

REACTIONS (8)
  - ACCIDENTAL DEATH [None]
  - DISORIENTATION [None]
  - DRUG ABUSE [None]
  - DRUG DIVERSION [None]
  - DYSPNOEA [None]
  - MULTIPLE DRUG OVERDOSE [None]
  - RESPIRATORY ARREST [None]
  - THERAPEUTIC AGENT TOXICITY [None]
